FAERS Safety Report 14114205 (Version 2)
Quarter: 2017Q4

REPORT INFORMATION
  Report Type: Report from Study
  Country: SE (occurrence: SE)
  Receive Date: 20171023
  Receipt Date: 20171027
  Transmission Date: 20180321
  Serious: Yes (Hospitalization)
  Sender: FDA-Public Use
  Company Number: SE-ROCHE-2009584

PATIENT
  Age: 42 Year
  Sex: Female
  Weight: 55 kg

DRUGS (8)
  1. PARACETAMOL [Concomitant]
     Active Substance: ACETAMINOPHEN
     Route: 048
     Dates: start: 20171015
  2. OMEPRAZOL [Concomitant]
     Active Substance: OMEPRAZOLE
     Route: 048
     Dates: start: 20170920
  3. EUSAPRIM FORTE [Concomitant]
     Active Substance: SULFAMETHOXAZOLE\TRIMETHOPRIM
     Dosage: 160/80 MG
     Route: 048
     Dates: start: 20170920
  4. OBINUTUZUMAB. [Suspect]
     Active Substance: OBINUTUZUMAB
     Indication: CHRONIC LYMPHOCYTIC LEUKAEMIA
     Dosage: MOST RECENT DOSE PRIOR TO SAE- 04/OCT/2017?100 MG, D1; 900 MG, D1(2); 1000 MG, D8+15, Q28D?CYCLES 2-
     Route: 042
     Dates: start: 20170920
  5. MOLLIPECT [Concomitant]
     Active Substance: BROMHEXINE
     Dosage: 0.5/1 MG/ML
     Route: 048
     Dates: start: 20171006
  6. VENETOCLAX. [Suspect]
     Active Substance: VENETOCLAX
     Indication: CHRONIC LYMPHOCYTIC LEUKAEMIA
     Dosage: MOST RECENT DOSE PRIOR TO SAE- 14/OCT/2017?(2 TABL. AT 10 MG), D22-28, Q28D
     Route: 048
  7. ZOPICLONE [Concomitant]
     Active Substance: ZOPICLONE
     Route: 048
     Dates: start: 20170929
  8. MIRENA [Concomitant]
     Active Substance: LEVONORGESTREL
     Dosage: 20/244 MG
     Route: 065
     Dates: start: 20160824

REACTIONS (1)
  - Pulmonary embolism [Not Recovered/Not Resolved]

NARRATIVE: CASE EVENT DATE: 20171015
